FAERS Safety Report 6986428-4 (Version None)
Quarter: 2010Q3

REPORT INFORMATION
  Report Type: 
  Country: None (occurrence: None)
  Receive Date: 20100915
  Receipt Date: 20090629
  Transmission Date: 20110219
  Serious: No
  Sender: FDA-Public Use
  Company Number: US-WYE-H09952609

PATIENT
  Sex: Female

DRUGS (4)
  1. PRISTIQ [Suspect]
     Indication: ANXIETY
     Route: 048
     Dates: start: 20090501
  2. PRISTIQ [Suspect]
     Indication: STRESS
  3. SYNTHROID [Concomitant]
  4. AMBIEN [Concomitant]

REACTIONS (4)
  - ANORGASMIA [None]
  - DIARRHOEA [None]
  - DRUG INEFFECTIVE [None]
  - LOSS OF LIBIDO [None]
